FAERS Safety Report 6664665-6 (Version None)
Quarter: 2010Q1

REPORT INFORMATION
  Report Type: 
  Country: None (occurrence: None)
  Receive Date: 20100330
  Receipt Date: 20100325
  Transmission Date: 20100710
  Serious: Yes (Hospitalization)
  Sender: FDA-Public Use
  Company Number: 2010S1000060-002

PATIENT
  Age: 73 Year
  Sex: Female

DRUGS (3)
  1. PITAVASTATIN CALCIUM [Suspect]
     Indication: HYPERCHOLESTEROLAEMIA
     Dosage: 1 MG, PO
     Route: 048
     Dates: start: 20040512, end: 20081127
  2. CANDESARTAN CILEXETIL [Concomitant]
  3. NIFEDIPINE [Concomitant]

REACTIONS (1)
  - DUODENAL ULCER HAEMORRHAGE [None]
